FAERS Safety Report 6114178-5 (Version None)
Quarter: 2009Q1

REPORT INFORMATION
  Report Type: 
  Country: None (occurrence: None)
  Receive Date: 20090312
  Receipt Date: 20080502
  Transmission Date: 20090719
  Serious: No
  Sender: FDA-Public Use
  Company Number: US-ABBOTT-08P-163-0450473-00

PATIENT
  Sex: Female
  Weight: 136.2 kg

DRUGS (2)
  1. DEPAKOTE [Suspect]
     Indication: BIPOLAR DISORDER
     Dosage: 3000 MG DAILY
     Dates: start: 20071001
  2. DEPAKOTE [Suspect]

REACTIONS (3)
  - ABNORMAL BEHAVIOUR [None]
  - LETHARGY [None]
  - MENTAL STATUS CHANGES [None]
